FAERS Safety Report 9607304 (Version 2)
Quarter: 2013Q4

REPORT INFORMATION
  Report Type: Spontaneous
  Country: US (occurrence: US)
  Receive Date: 20131009
  Receipt Date: 20131011
  Transmission Date: 20140711
  Serious: Yes (Life-Threatening, Hospitalization, Other)
  Sender: FDA-Public Use
  Company Number: US-009507513-1310USA002717

PATIENT
  Age: 54 Year
  Sex: Male

DRUGS (2)
  1. PRINIVIL [Suspect]
     Dosage: 10 MG, DAILY
     Route: 048
  2. TAMSULOSIN HYDROCHLORIDE [Concomitant]
     Dosage: UNK

REACTIONS (2)
  - Angioedema [Recovered/Resolved]
  - Endotracheal intubation [Unknown]
